FAERS Safety Report 5070324-6 (Version None)
Quarter: 2006Q3

REPORT INFORMATION
  Report Type: 
  Country: None (occurrence: None)
  Receive Date: 20060731
  Receipt Date: 20060717
  Transmission Date: 20061208
  Serious: Yes (Hospitalization, Other)
  Sender: FDA-Public Use
  Company Number: 2006078789

PATIENT
  Age: 77 Year
  Sex: Female
  Weight: 58.6 kg

DRUGS (9)
  1. LYRICA [Suspect]
     Indication: NEURALGIA
     Dosage: 150 MG (75 MG, 2 IN 1 D), ORAL
     Route: 048
  2. AMITRIPTYLINE HCL [Concomitant]
  3. LYRICA [Suspect]
     Indication: NEURALGIA
     Dosage: 150 MG (75 MG, 2 IN 1), ORAL
     Route: 048
  4. AMITRIPTYLINE HCL [Concomitant]
  5. LYRICA [Suspect]
     Indication: NEURALGIA
     Dosage: 150 MG (75 MG, 2 IN 1 D), ORAL
     Route: 048
  6. AMITRIPYTLINE [Concomitant]
  7. LIPITOR [Concomitant]
  8. MEGAFOL (FOLIC ACID) [Concomitant]
  9. TRAMADOL HCL [Concomitant]

REACTIONS (2)
  - FALL [None]
  - MEMORY IMPAIRMENT [None]
